FAERS Safety Report 19998146 (Version 1)
Quarter: 2021Q4

REPORT INFORMATION
  Report Type: Report from Study
  Country: EG (occurrence: EG)
  Receive Date: 20211026
  Receipt Date: 20211026
  Transmission Date: 20220303
  Serious: Yes (Other)
  Sender: FDA-Public Use
  Company Number: EG-NOVARTISPH-NVSC2021EG240694

PATIENT
  Age: 29 Year
  Sex: Female

DRUGS (5)
  1. GILENYA [Suspect]
     Active Substance: FINGOLIMOD HYDROCHLORIDE
     Indication: Multiple sclerosis
     Dosage: 0.5 MG, QD
     Route: 048
     Dates: start: 201911, end: 202104
  2. VITAMIN D [Concomitant]
     Active Substance: VITAMIN D NOS
     Indication: Multiple sclerosis
     Dosage: 1 DF, QMO
     Route: 065
     Dates: start: 2019, end: 202104
  3. OMEGA-3 FATTY ACIDS [Concomitant]
     Active Substance: OMEGA-3 FATTY ACIDS
     Indication: Multiple sclerosis
     Dosage: 1 DF, QD
     Route: 048
     Dates: start: 2019, end: 202104
  4. URSODIOL [Concomitant]
     Active Substance: URSODIOL
     Indication: Hepatic enzyme abnormal
     Dosage: 1 DF, BID
     Route: 048
     Dates: start: 202012, end: 202104
  5. FOLIC ACID [Concomitant]
     Active Substance: FOLIC ACID
     Indication: White blood cell count decreased
     Dosage: 1 DF, QD
     Route: 048
     Dates: start: 202012, end: 202104

REACTIONS (5)
  - Peptic ulcer [Recovering/Resolving]
  - Hepatic enzyme increased [Recovered/Resolved]
  - White blood cell count decreased [Recovered/Resolved]
  - Hypoaesthesia [Not Recovered/Not Resolved]
  - Eye pain [Not Recovered/Not Resolved]

NARRATIVE: CASE EVENT DATE: 20201220
